FAERS Safety Report 18081320 (Version 2)
Quarter: 2020Q3

REPORT INFORMATION
  Report Type: Spontaneous
  Country: US (occurrence: US)
  Receive Date: 20200728
  Receipt Date: 20200828
  Transmission Date: 20201103
  Serious: Yes (Other)
  Sender: FDA-Public Use
  Company Number: US-ASTRAZENECA-2020SE93238

PATIENT
  Age: 28405 Day
  Sex: Female
  Weight: 62.6 kg

DRUGS (5)
  1. TYLENOL [Concomitant]
     Active Substance: ACETAMINOPHEN
     Indication: PAIN
  2. IMFINZI [Suspect]
     Active Substance: DURVALUMAB
     Indication: LUNG NEOPLASM MALIGNANT
     Dosage: EVERY TWO WEEKS
     Route: 042
     Dates: start: 20200407, end: 20200421
  3. IMFINZI [Suspect]
     Active Substance: DURVALUMAB
     Indication: IMMUNE ENHANCEMENT THERAPY
     Dosage: EVERY TWO WEEKS
     Route: 042
     Dates: start: 20200407, end: 20200407
  4. IMFINZI [Suspect]
     Active Substance: DURVALUMAB
     Indication: LUNG NEOPLASM MALIGNANT
     Dosage: EVERY TWO WEEKS
     Route: 042
     Dates: start: 20200407, end: 20200407
  5. IMFINZI [Suspect]
     Active Substance: DURVALUMAB
     Indication: IMMUNE ENHANCEMENT THERAPY
     Dosage: EVERY TWO WEEKS
     Route: 042
     Dates: start: 20200407, end: 20200421

REACTIONS (12)
  - Lethargy [Not Recovered/Not Resolved]
  - Malaise [Not Recovered/Not Resolved]
  - Dyspnoea [Recovering/Resolving]
  - Intervertebral disc protrusion [Not Recovered/Not Resolved]
  - Aspartate aminotransferase increased [Not Recovered/Not Resolved]
  - Hepatitis [Unknown]
  - Diarrhoea [Not Recovered/Not Resolved]
  - Wheezing [Recovered/Resolved]
  - Alanine aminotransferase increased [Unknown]
  - Dizziness [Unknown]
  - Pulmonary function test abnormal [Recovering/Resolving]
  - Cough [Not Recovered/Not Resolved]

NARRATIVE: CASE EVENT DATE: 20200407
